FAERS Safety Report 20204420 (Version 1)
Quarter: 2021Q4

REPORT INFORMATION
  Report Type: Spontaneous
  Country: NL (occurrence: NL)
  Receive Date: 20211220
  Receipt Date: 20211220
  Transmission Date: 20220303
  Serious: Yes (Life-Threatening)
  Sender: FDA-Public Use
  Company Number: None

PATIENT
  Sex: Male
  Weight: 86 kg

DRUGS (4)
  1. FOLIC ACID [Suspect]
     Active Substance: FOLIC ACID
     Indication: Adverse drug reaction
     Dosage: 1X PER WEEK 2 PIECES, 24 HOURS AFTER METHOTREXATE SC,/ BRAND NAME NOT SPECIFIED,UNIT DOSE:10MILLIGRA
     Route: 065
     Dates: start: 20211125, end: 20211125
  2. APIXABAN [Concomitant]
     Active Substance: APIXABAN
     Dosage: 2,5 MG (MILLIGRAM),/ BRAND NAME NOT SPECIFIED,THERAPY START DATE :THERAPY END DATE :ASKU
  3. METHOTREXATE [Concomitant]
     Active Substance: METHOTREXATE
     Dosage: 15 MG SUBCUTANEOUSLY, / BRAND NAME NOT SPECIFIED,THERAPY START DATE :THERAPY END DATE:ASKU
     Route: 058
  4. INFLIXIMAB/INFLIXIMAB [Concomitant]
     Dosage: 400MG INTRAVENOUS,FOR INFUSION NVZA,THERAPY START DATE :THERAPY END DATE :ASKU
     Route: 042

REACTIONS (5)
  - Pruritus [Recovering/Resolving]
  - Dermatitis bullous [Recovering/Resolving]
  - Dyspnoea [Recovering/Resolving]
  - Anaphylactic reaction [Recovering/Resolving]
  - Peripheral coldness [Recovering/Resolving]
